FAERS Safety Report 8542290 (Version 2)
Quarter: 2013Q1

REPORT INFORMATION
  Report Type: Spontaneous
  Country: US (occurrence: None)
  Receive Date: 20120424
  Receipt Date: 20121231
  Transmission Date: 20140127
  Serious: Yes (Disabling, Other)
  Sender: FDA-Public Use
  Company Number: ACO_30088_2012

PATIENT
  Age: 52 Year
  Sex: Female

DRUGS (1)
  1. AMPYRA [Suspect]
     Indication: PRODUCT USED FOR UNKNOWN INDICATION
     Dosage: 10 MG, BID, ORAL
     Route: 048
     Dates: start: 20100802

REACTIONS (8)
  - Dysstasia [None]
  - Carotid artery disease [None]
  - Paraesthesia [None]
  - Dizziness [None]
  - Hypoaesthesia [None]
  - Balance disorder [None]
  - Tremor [None]
  - Muscular weakness [None]
